FAERS Safety Report 9954146 (Version 1)
Quarter: 2014Q1

REPORT INFORMATION
  Report Type: Report from Study
  Country: US (occurrence: US)
  Receive Date: 20140304
  Receipt Date: 20140304
  Transmission Date: 20141002
  Serious: No
  Sender: FDA-Public Use
  Company Number: US-ABBVIE-13P-163-1076596-00

PATIENT
  Age: 56 Year
  Sex: Male

DRUGS (2)
  1. HUMIRA [Suspect]
     Indication: CROHN^S DISEASE
     Dates: start: 201205
  2. PRAVACHOL [Concomitant]
     Indication: BLOOD CHOLESTEROL
     Dosage: 1 TAB DAILY

REACTIONS (1)
  - Weight increased [Not Recovered/Not Resolved]
